FAERS Safety Report 8337627-0 (Version None)
Quarter: 2012Q2

REPORT INFORMATION
  Report Type: 
  Country: None (occurrence: None)
  Receive Date: 20120504
  Receipt Date: 20120504
  Transmission Date: 20120825
  Serious: Yes (Other)
  Sender: FDA-Public Use
  Company Number: US-JNJFOC-20120411990

PATIENT
  Sex: Male

DRUGS (3)
  1. LYRICA [Suspect]
     Indication: PRODUCT USED FOR UNKNOWN INDICATION
     Route: 048
     Dates: end: 20120101
  2. LUNESTA [Suspect]
     Indication: PRODUCT USED FOR UNKNOWN INDICATION
     Route: 048
     Dates: end: 20120101
  3. NUCYNTA [Suspect]
     Indication: ANALGESIC THERAPY
     Route: 048
     Dates: start: 20120101, end: 20120101

REACTIONS (5)
  - RASH [None]
  - DEPRESSION [None]
  - LOCAL SWELLING [None]
  - URTICARIA [None]
  - ABDOMINAL PAIN [None]
